FAERS Safety Report 18647000 (Version 1)
Quarter: 2020Q4

REPORT INFORMATION
  Report Type: Spontaneous
  Country: US (occurrence: US)
  Receive Date: 20201222
  Receipt Date: 20201222
  Transmission Date: 20210114
  Serious: Yes (Death, Hospitalization, Other)
  Sender: FDA-Public Use
  Company Number: US-LUPIN PHARMACEUTICALS INC.-2020-10468

PATIENT
  Age: 77 Year
  Sex: Male

DRUGS (14)
  1. METHYLPREDNISOLONE. [Suspect]
     Active Substance: METHYLPREDNISOLONE
     Indication: MYOCARDITIS
     Dosage: UNK
     Route: 065
  2. MIDAZOLAM HYDROCHLORIDE. [Concomitant]
     Active Substance: MIDAZOLAM HYDROCHLORIDE
     Indication: ANAESTHESIA
     Dosage: 2 MILLIGRAM
     Route: 042
  3. PROPOFOL. [Concomitant]
     Active Substance: PROPOFOL
     Indication: ANAESTHESIA
     Dosage: 30 MILLIGRAM
     Route: 042
  4. PROPOFOL. [Concomitant]
     Active Substance: PROPOFOL
     Dosage: 140 MICROGRAM/KILOGRAM
     Route: 065
  5. AMIODARONE [Suspect]
     Active Substance: AMIODARONE
     Indication: MYOCARDITIS
     Dosage: UNK
     Route: 065
  6. ESMOLOL [Concomitant]
     Active Substance: ESMOLOL HYDROCHLORIDE
     Indication: TACHYCARDIA
  7. MILRINONE [Suspect]
     Active Substance: MILRINONE
     Indication: MYOCARDITIS
     Dosage: UNK
     Route: 065
  8. CARBOPLATIN. [Concomitant]
     Active Substance: CARBOPLATIN
     Indication: NON-SMALL CELL LUNG CANCER METASTATIC
     Dosage: UNK
     Route: 065
  9. FENTANYL. [Concomitant]
     Active Substance: FENTANYL
     Indication: ANAESTHESIA
     Dosage: 50 MICROGRAM
     Route: 042
  10. PEMBROLIZUMAB. [Concomitant]
     Active Substance: PEMBROLIZUMAB
     Indication: NON-SMALL CELL LUNG CANCER METASTATIC
     Dosage: UNK
     Route: 065
  11. PHENYLEPHRINE [Concomitant]
     Active Substance: PHENYLEPHRINE HYDROCHLORIDE
     Indication: BLOOD PRESSURE MANAGEMENT
     Dosage: 240 MICROGRAM
     Route: 065
  12. PHENYLEPHRINE [Concomitant]
     Active Substance: PHENYLEPHRINE HYDROCHLORIDE
     Indication: TACHYCARDIA
  13. PEMETREXED. [Concomitant]
     Active Substance: PEMETREXED
     Indication: NON-SMALL CELL LUNG CANCER METASTATIC
     Dosage: UNK
     Route: 065
  14. ESMOLOL [Concomitant]
     Active Substance: ESMOLOL HYDROCHLORIDE
     Indication: BLOOD PRESSURE MANAGEMENT
     Dosage: 30 MILLIGRAM
     Route: 065

REACTIONS (3)
  - Ventricular tachycardia [Fatal]
  - Cardiac failure [Fatal]
  - Drug ineffective [Fatal]
